FAERS Safety Report 6220914-X (Version None)
Quarter: 2009Q2

REPORT INFORMATION
  Report Type: 
  Country: None (occurrence: None)
  Receive Date: 20090604
  Receipt Date: 20090601
  Transmission Date: 20091009
  Serious: Yes (Other)
  Sender: FDA-Public Use
  Company Number: CA-WYE-G03777209

PATIENT
  Age: 53 Year
  Sex: Female

DRUGS (4)
  1. EFFEXOR XR [Suspect]
     Dosage: 37.5 MG 1X PER 1 DAY ORAL
     Route: 048
     Dates: start: 20080401, end: 20090601
  2. AMITRIPTYLINE HYDROCHLORIDE [Concomitant]
  3. TRAMADOL HCL [Concomitant]
  4. ROBAXACET (METHOCARBAMOL/ACETAMINOPHEN) [Concomitant]

REACTIONS (1)
  - MACULAR DEGENERATION [None]
